FAERS Safety Report 15736871 (Version 3)
Quarter: 2019Q1

REPORT INFORMATION
  Report Type: Spontaneous
  Country: US (occurrence: US)
  Receive Date: 20181218
  Receipt Date: 20190110
  Transmission Date: 20190417
  Serious: Yes (Other)
  Sender: FDA-Public Use
  Company Number: US-VERTEX PHARMACEUTICALS-2018-007118

PATIENT
  Age: 45 Year
  Sex: Male

DRUGS (4)
  1. ZENPEP [Concomitant]
     Active Substance: PANCRELIPASE AMYLASE\PANCRELIPASE LIPASE\PANCRELIPASE PROTEASE
  2. SYMDEKO [Suspect]
     Active Substance: IVACAFTOR\TEZACAFTOR
     Indication: CYSTIC FIBROSIS
     Dosage: 100MG TEZACAFTOR/150MG IVACAFTOR AM; 150MG IVACAFTOR PM
     Route: 048
     Dates: start: 20180925
  3. PULMOZYME [Concomitant]
     Active Substance: DORNASE ALFA
  4. PROAIR HFA [Concomitant]
     Active Substance: ALBUTEROL SULFATE

REACTIONS (7)
  - Nephrolithiasis [Not Recovered/Not Resolved]
  - Eczema [Unknown]
  - Abdominal pain upper [Unknown]
  - Cough [Unknown]
  - Dizziness [Recovered/Resolved]
  - Malaise [Unknown]
  - Skin ulcer [Unknown]

NARRATIVE: CASE EVENT DATE: 2018
